FAERS Safety Report 21259641 (Version 1)
Quarter: 2022Q3

REPORT INFORMATION
  Report Type: Spontaneous
  Country: US (occurrence: None)
  Receive Date: 20220825
  Receipt Date: 20220825
  Transmission Date: 20221027
  Serious: No
  Sender: FDA-Public Use
  Company Number: None

PATIENT
  Sex: Female
  Weight: 90.26 kg

DRUGS (24)
  1. VERZENIO [Suspect]
     Active Substance: ABEMACICLIB
     Indication: Metastases to central nervous system
     Dosage: FREQUENCY : TWICE A DAY;?
     Route: 048
     Dates: start: 20220728
  2. AMPYRA [Concomitant]
  3. BACLOFEN [Concomitant]
     Active Substance: BACLOFEN
  4. BETHANECHOL [Concomitant]
     Active Substance: BETHANECHOL
  5. DEXAMETHASONE [Concomitant]
  6. DIAZEPAM [Concomitant]
  7. DIPHENHYDRAMINE [Concomitant]
  8. DIAZEPAM [Concomitant]
  9. DIPHENHYDRAMINE [Concomitant]
  10. FAMOTIDINE [Concomitant]
  11. HEPARIN [Concomitant]
     Active Substance: HEPARIN SODIUM
  12. LETROZOLE [Concomitant]
  13. METHYLPHENIDATE [Concomitant]
  14. MULTIVITAMINS/FLUORIDE (WITH ADE) [Concomitant]
  15. MYRBETRIQ [Concomitant]
     Active Substance: MIRABEGRON
  16. NORCO [Concomitant]
     Active Substance: ACETAMINOPHEN\HYDROCODONE BITARTRATE
  17. PROZAC [Concomitant]
  18. POTASSIUM CHLORIDE [Concomitant]
  19. PROCHLORPERAZINE [Concomitant]
  20. TUMS E-X 750 [Concomitant]
  21. TYLENOL 8 HOUR ARTHRITIS PAIN [Concomitant]
  22. TYSABRI [Concomitant]
     Active Substance: NATALIZUMAB
  23. VITAMIN D3 [Concomitant]
  24. ZOFRAN [Concomitant]

REACTIONS (2)
  - Drug ineffective [None]
  - Therapy cessation [None]
